FAERS Safety Report 22620534 (Version 1)
Quarter: 2023Q2

REPORT INFORMATION
  Report Type: Report from Study
  Country: IE (occurrence: IE)
  Receive Date: 20230620
  Receipt Date: 20230620
  Transmission Date: 20230722
  Serious: Yes (Hospitalization, Other)
  Sender: FDA-Public Use
  Company Number: IE-TAKEDA-2022TUS037797

PATIENT
  Age: 62 Year
  Sex: Female

DRUGS (8)
  1. VEDOLIZUMAB [Suspect]
     Active Substance: VEDOLIZUMAB
     Indication: Crohn^s disease
     Dosage: 108 MILLIGRAM
     Route: 058
     Dates: start: 20220601
  2. VEDOLIZUMAB [Suspect]
     Active Substance: VEDOLIZUMAB
     Dosage: 108 MILLIGRAM
     Route: 058
     Dates: start: 20220615
  3. ENTOCORT [Concomitant]
     Active Substance: BUDESONIDE
     Dosage: 6 MILLIGRAM
     Route: 050
  4. ZESTRIL [Concomitant]
     Active Substance: LISINOPRIL
     Dosage: 20 MILLIGRAM, QD
     Route: 050
  5. NEBIVOLOL TEVA [Concomitant]
     Dosage: 5 MILLIGRAM, QD
     Route: 050
  6. CARDURA XL [Concomitant]
     Active Substance: DOXAZOSIN MESYLATE
     Dosage: 8 MILLIGRAM, QD
     Route: 050
  7. ROSUVASTATIN [Concomitant]
     Active Substance: ROSUVASTATIN
     Dosage: 10 MILLIGRAM, QD
     Route: 050
  8. NEXAZOLE [Concomitant]
     Dosage: 40 MILLIGRAM, QD
     Route: 050

REACTIONS (7)
  - Intestinal stenosis [Unknown]
  - Feeling abnormal [Recovered/Resolved]
  - Malaise [Unknown]
  - Diarrhoea [Unknown]
  - Defaecation urgency [Unknown]
  - Dizziness [Unknown]
  - Nausea [Recovered/Resolved]

NARRATIVE: CASE EVENT DATE: 20220601
